FAERS Safety Report 4817009-6 (Version None)
Quarter: 2005Q4

REPORT INFORMATION
  Report Type: 
  Country: None (occurrence: None)
  Receive Date: 20051101
  Receipt Date: 20031024
  Transmission Date: 20060501
  Serious: Yes (Hospitalization, Congenital Anomaly)
  Sender: FDA-Public Use
  Company Number: GB-GLAXOSMITHKLINE-B0313125B

PATIENT
  Sex: Male

DRUGS (2)
  1. LAMICTAL [Suspect]
  2. NO CONCURRENT MEDICATION [Concomitant]

REACTIONS (6)
  - BICUSPID AORTIC VALVE [None]
  - CRYPTORCHISM [None]
  - DRUG EXPOSURE DURING PREGNANCY [None]
  - DRUG WITHDRAWAL SYNDROME [None]
  - IRRITABILITY [None]
  - RESTLESSNESS [None]
